FAERS Safety Report 4602298-3 (Version None)
Quarter: 2005Q2

REPORT INFORMATION
  Report Type: 
  Country: None (occurrence: None)
  Receive Date: 20050215
  Receipt Date: 20041118
  Transmission Date: 20051028
  Serious: Yes (Other)
  Sender: FDA-Public Use
  Company Number: 379992

PATIENT
  Age: 48 Year
  Sex: Female
  Weight: 59.6 kg

DRUGS (2)
  1. PEGASYS [Suspect]
     Indication: HEPATITIS C VIRUS
     Dosage: 180 MCG 1 PER WEEK, SUBCUTANEOUS
     Route: 058
     Dates: start: 20040116, end: 20040910
  2. COPEGUS [Concomitant]

REACTIONS (4)
  - DIPLOPIA [None]
  - EYE HAEMORRHAGE [None]
  - RETINAL EXUDATES [None]
  - VISION BLURRED [None]
